FAERS Safety Report 18173034 (Version 3)
Quarter: 2020Q3

REPORT INFORMATION
  Report Type: Spontaneous
  Country: FR (occurrence: FR)
  Receive Date: 20200820
  Receipt Date: 20200903
  Transmission Date: 20201103
  Serious: Yes (Death)
  Sender: FDA-Public Use
  Company Number: FR-ROCHE-2662085

PATIENT
  Age: 63 Year
  Sex: Female

DRUGS (16)
  1. OCREVUS [Suspect]
     Active Substance: OCRELIZUMAB
     Dosage: D15
     Route: 042
     Dates: start: 20191031, end: 20191031
  2. MOVICOL [Concomitant]
     Active Substance: POLYETHYLENE GLYCOL 3350\POTASSIUM CHLORIDE\SODIUM BICARBONATE\SODIUM CHLORIDE
  3. RISPERIDONE. [Concomitant]
     Active Substance: RISPERIDONE
  4. IMOVANE [Concomitant]
     Active Substance: ZOPICLONE
  5. LOVENOX [Concomitant]
     Active Substance: ENOXAPARIN SODIUM
  6. TRIMEBUTINE [Concomitant]
     Active Substance: TRIMEBUTINE
  7. DOLIPRANE [Concomitant]
     Active Substance: ACETAMINOPHEN
  8. SERESTA [Concomitant]
     Active Substance: OXAZEPAM
  9. DIFFU?K [Concomitant]
     Active Substance: POTASSIUM CHLORIDE
  10. OCREVUS [Suspect]
     Active Substance: OCRELIZUMAB
     Dosage: M6
     Route: 042
     Dates: start: 20200622, end: 20200622
  11. OROZAMUDOL [Concomitant]
     Active Substance: TRAMADOL
  12. PARACETAMOL [Concomitant]
     Active Substance: ACETAMINOPHEN
  13. FEROGRAD [Concomitant]
     Active Substance: ASCORBIC ACID\FERROUS SULFATE
  14. OCREVUS [Suspect]
     Active Substance: OCRELIZUMAB
     Indication: SECONDARY PROGRESSIVE MULTIPLE SCLEROSIS
     Dosage: D1
     Route: 042
     Dates: start: 20191017, end: 20191017
  15. CETIRIZINE [Concomitant]
     Active Substance: CETIRIZINE HYDROCHLORIDE
  16. LANSOPRAZOLE. [Concomitant]
     Active Substance: LANSOPRAZOLE

REACTIONS (3)
  - Inappropriate schedule of product administration [Unknown]
  - Off label use [Unknown]
  - Cardio-respiratory arrest [Fatal]

NARRATIVE: CASE EVENT DATE: 20200727
